FAERS Safety Report 12011086 (Version 3)
Quarter: 2016Q4

REPORT INFORMATION
  Report Type: Report from Study
  Country: None (occurrence: NL)
  Receive Date: 20160205
  Receipt Date: 20161107
  Transmission Date: 20170206
  Serious: Yes (Death, Other)
  Sender: FDA-Public Use
  Company Number: NL-ABBVIE-16P-114-1551622-00

PATIENT
  Sex: Male

DRUGS (1)
  1. DUODOPA [Suspect]
     Active Substance: CARBIDOPA\LEVODOPA
     Indication: PARKINSON^S DISEASE
     Dosage: 20/5MG/ML, CD: 4.4 ML, CND: 2.5 ML
     Route: 050
     Dates: start: 20111208, end: 2016

REACTIONS (4)
  - Bedridden [Fatal]
  - Fatigue [Fatal]
  - Infection [Fatal]
  - Dementia [Fatal]
